FAERS Safety Report 6098335-2 (Version None)
Quarter: 2009Q1

REPORT INFORMATION
  Report Type: 
  Country: None (occurrence: None)
  Receive Date: 20090302
  Receipt Date: 20090225
  Transmission Date: 20090719
  Serious: Yes (Other)
  Sender: FDA-Public Use
  Company Number: US-PFIZER INC-2009159006

PATIENT
  Sex: Female

DRUGS (3)
  1. LIPITOR [Suspect]
     Dosage: 80 MG, 1X/DAY
  2. PLAVIX [Suspect]
  3. ALL OTHER THERAPEUTIC PRODUCTS [Concomitant]

REACTIONS (8)
  - CEREBROVASCULAR ACCIDENT [None]
  - FALL [None]
  - GAIT DISTURBANCE [None]
  - MYALGIA [None]
  - NERVE COMPRESSION [None]
  - PRODUCT QUALITY ISSUE [None]
  - UPPER LIMB FRACTURE [None]
  - WRONG TECHNIQUE IN DRUG USAGE PROCESS [None]
